FAERS Safety Report 18149137 (Version 1)
Quarter: 2020Q3

REPORT INFORMATION
  Report Type: Spontaneous
  Country: US (occurrence: US)
  Receive Date: 20200813
  Receipt Date: 20200813
  Transmission Date: 20201103
  Serious: No
  Sender: FDA-Public Use
  Company Number: None

PATIENT
  Sex: Female

DRUGS (1)
  1. MYCOPHENOLATE ORAL SUSP 200MG/ML ASCEND LABORATORIES, LLC A SUBSIDARY OF ALKEM LABORATOIES LTD [Suspect]
     Active Substance: MYCOPHENOLIC ACID
     Indication: URTICARIA
     Route: 048
     Dates: start: 201910

REACTIONS (3)
  - Rash [None]
  - Product formulation issue [None]
  - Product preparation error [None]
